FAERS Safety Report 15937053 (Version 3)
Quarter: 2019Q3

REPORT INFORMATION
  Report Type: Spontaneous
  Country: US (occurrence: US)
  Receive Date: 20190208
  Receipt Date: 20190718
  Transmission Date: 20191004
  Serious: Yes (Other)
  Sender: FDA-Public Use
  Company Number: US-ASTRAZENECA-2018SF25964

PATIENT
  Sex: Male
  Weight: 111.1 kg

DRUGS (24)
  1. PREDNISONE. [Concomitant]
     Active Substance: PREDNISONE
  2. FERROUS SULFATE. [Concomitant]
     Active Substance: FERROUS SULFATE
  3. AZITHROMYCIN ANHYDROUS. [Concomitant]
     Active Substance: AZITHROMYCIN ANHYDROUS
     Indication: RESPIRATORY DISORDER
  4. PLAVIX [Concomitant]
     Active Substance: CLOPIDOGREL BISULFATE
     Indication: THROMBOSIS
  5. PANTOPRAZOLE [Suspect]
     Active Substance: PANTOPRAZOLE
     Route: 065
  6. PREVACID [Suspect]
     Active Substance: LANSOPRAZOLE
     Route: 065
     Dates: start: 20051004, end: 20101006
  7. CYCLOPHOSPHAMIDE. [Concomitant]
     Active Substance: CYCLOPHOSPHAMIDE
  8. PENTOXIFYLLINE. [Concomitant]
     Active Substance: PENTOXIFYLLINE
  9. ASPIRIN. [Concomitant]
     Active Substance: ASPIRIN
     Indication: THROMBOSIS
  10. LOPRESSOR [Concomitant]
     Active Substance: METOPROLOL TARTRATE
  11. METOPROLOL. [Concomitant]
     Active Substance: METOPROLOL
  12. COUMADIN [Concomitant]
     Active Substance: WARFARIN SODIUM
  13. LISINOPRIL. [Concomitant]
     Active Substance: LISINOPRIL
     Indication: BLOOD PRESSURE MEASUREMENT
  14. FLUOXETINE [Concomitant]
     Active Substance: FLUOXETINE HYDROCHLORIDE
     Indication: DEPRESSION
  15. DOCUSATE [Concomitant]
     Active Substance: DOCUSATE
  16. NEXIUM [Suspect]
     Active Substance: ESOMEPRAZOLE MAGNESIUM
     Route: 048
     Dates: start: 20051004, end: 20101006
  17. PRILOSEC [Suspect]
     Active Substance: OMEPRAZOLE MAGNESIUM
     Indication: GASTROOESOPHAGEAL REFLUX DISEASE
     Dosage: 20.0MG UNKNOWN
     Route: 048
     Dates: start: 20051004, end: 20101006
  18. SYNTHROID [Concomitant]
     Active Substance: LEVOTHYROXINE SODIUM
  19. LASIX [Concomitant]
     Active Substance: FUROSEMIDE
  20. ZOCOR [Concomitant]
     Active Substance: SIMVASTATIN
  21. TUMS [Concomitant]
     Active Substance: CALCIUM CARBONATE
  22. WARFARIN [Concomitant]
     Active Substance: WARFARIN
  23. AMLODIPINE [Concomitant]
     Active Substance: AMLODIPINE BESYLATE
  24. CYCLOPHOSPHAMIDE. [Concomitant]
     Active Substance: CYCLOPHOSPHAMIDE
     Indication: NEPHROPATHY

REACTIONS (5)
  - Renal failure [Unknown]
  - Renal disorder [Not Recovered/Not Resolved]
  - Gastrooesophageal reflux disease [Unknown]
  - Chronic kidney disease [Unknown]
  - Nephrolithiasis [Unknown]
